FAERS Safety Report 21410937 (Version 1)
Quarter: 2022Q4

REPORT INFORMATION
  Report Type: Report from Study
  Country: JP (occurrence: JP)
  Receive Date: 20221005
  Receipt Date: 20221005
  Transmission Date: 20230113
  Serious: Yes (Death, Other)
  Sender: FDA-Public Use
  Company Number: JP-MYLANLABS-2022M1110494

PATIENT

DRUGS (3)
  1. CYCLOSPORINE [Suspect]
     Active Substance: CYCLOSPORINE
     Indication: Haemophagocytic lymphohistiocytosis
     Dosage: BODY WEIGHT BASED TWICE A WEEK DOSAGE FOR A TARGET TROUGH LEVEL OF 200 MICROGRAM/L.
     Route: 065
  2. DEXAMETHASONE [Suspect]
     Active Substance: DEXAMETHASONE
     Indication: Haemophagocytic lymphohistiocytosis
     Dosage: 10 MILLIGRAM/SQ. METER, QD, ON WEEKS 1-2; SCHEDULED TO BE FOLLOWED BY 5 MG/M2/DAY FOR WEEKS 3-4, 2.5
     Route: 065
  3. ETOPOSIDE [Suspect]
     Active Substance: ETOPOSIDE
     Indication: Haemophagocytic lymphohistiocytosis
     Dosage: 150 MILLIGRAM/SQ. METER,  TWICE WEEKLY, ON WEEKS 1-2; SCHEDULED TO BE FOLLOWED BY 150 MG/M2 ONCE A W
     Route: 042

REACTIONS (10)
  - Lung disorder [Fatal]
  - Renal disorder [Fatal]
  - Cardiac disorder [Fatal]
  - Liver disorder [Fatal]
  - Encephalopathy [Fatal]
  - Disseminated intravascular coagulation [Fatal]
  - Staphylococcal bacteraemia [Fatal]
  - Condition aggravated [Unknown]
  - Drug ineffective for unapproved indication [Unknown]
  - Off label use [Unknown]
